FAERS Safety Report 12279862 (Version 4)
Quarter: 2016Q4

REPORT INFORMATION
  Report Type: Report from Study
  Country: US (occurrence: US)
  Receive Date: 20160418
  Receipt Date: 20161125
  Transmission Date: 20170207
  Serious: No
  Sender: FDA-Public Use
  Company Number: PHHY2013US098974

PATIENT
  Age: 39 Year
  Sex: Female

DRUGS (1)
  1. GILENYA [Suspect]
     Active Substance: FINGOLIMOD HYDROCHLORIDE
     Indication: MULTIPLE SCLEROSIS
     Dosage: UNK UNK, QD
     Route: 048

REACTIONS (4)
  - Blood alkaline phosphatase decreased [Unknown]
  - Anxiety [Not Recovered/Not Resolved]
  - Migraine with aura [Not Recovered/Not Resolved]
  - Gamma-glutamyltransferase decreased [Unknown]

NARRATIVE: CASE EVENT DATE: 20130408
